FAERS Safety Report 21492413 (Version 1)
Quarter: 2022Q4

REPORT INFORMATION
  Report Type: Spontaneous
  Country: US (occurrence: US)
  Receive Date: 20221021
  Receipt Date: 20221021
  Transmission Date: 20230112
  Serious: No
  Sender: FDA-Public Use
  Company Number: US-ALLERGAN-2224864US

PATIENT
  Age: 75 Year
  Sex: Female
  Weight: 90.264 kg

DRUGS (4)
  1. BLEPHAMIDE [Suspect]
     Active Substance: PREDNISOLONE ACETATE\SULFACETAMIDE SODIUM
     Indication: Prophylaxis
     Dosage: 1 GTT, QD
     Route: 047
     Dates: start: 20220713, end: 20220714
  2. BESIVANCE [Suspect]
     Active Substance: BESIFLOXACIN
     Indication: Product used for unknown indication
     Dosage: 1 GTT, QD
     Route: 047
     Dates: start: 20220713, end: 20220714
  3. PROLENSA [Suspect]
     Active Substance: BROMFENAC SODIUM
     Indication: Product used for unknown indication
     Dosage: 1 DROP ON THE RIGHT EYE
     Route: 047
     Dates: start: 20220713, end: 20220714
  4. INSULIN NOS [Concomitant]
     Active Substance: INSULIN NOS
     Indication: Diabetes mellitus
     Dosage: UNK

REACTIONS (5)
  - Pharyngeal swelling [Recovered/Resolved]
  - Eye disorder [Unknown]
  - Off label use [Unknown]
  - Eye swelling [Recovered/Resolved]
  - Ocular hyperaemia [Recovered/Resolved]

NARRATIVE: CASE EVENT DATE: 20220713
